FAERS Safety Report 9796674 (Version 3)
Quarter: 2014Q1

REPORT INFORMATION
  Report Type: Report from Study
  Country: US (occurrence: US)
  Receive Date: 20140103
  Receipt Date: 20140211
  Transmission Date: 20141002
  Serious: Yes (Other)
  Sender: FDA-Public Use
  Company Number: US-ACTELION-A-US2013-92933

PATIENT
  Age: 48 Year
  Sex: Female

DRUGS (13)
  1. MACITENTAN [Suspect]
     Indication: PULMONARY HYPERTENSION
     Dosage: 10 MG, QD
     Route: 048
     Dates: start: 20131222
  2. TRACLEER [Suspect]
     Indication: PULMONARY HYPERTENSION
     Dosage: UNK
     Route: 048
  3. NORVASC [Concomitant]
     Dosage: 10 MG, QD
     Dates: start: 2009
  4. HUMALOG [Concomitant]
     Dosage: 15 U, TID
     Dates: start: 2009
  5. IMURAN [Concomitant]
     Dosage: 100 UNK, BID
     Dates: start: 2010
  6. COZAAR [Concomitant]
     Dosage: 50 MG, QD
     Dates: start: 2009
  7. N-ACETYLCYSTEINE [Concomitant]
     Dosage: 600 MG, BID
     Dates: start: 2012
  8. SYNTHROID [Concomitant]
     Dosage: 125 MCG, QD
     Dates: start: 2008
  9. PROTONIX [Concomitant]
     Dosage: 40 MG, QD
     Dates: start: 2011
  10. PREDNISONE [Concomitant]
     Dosage: 10 MG, QD
  11. CALTRATE + D [Concomitant]
     Dosage: 600 UNK, QD
     Dates: start: 2012
  12. COUMADIN [Concomitant]
     Dosage: 2 MG, QD
     Dates: start: 2012
  13. VITAMIN D3 [Concomitant]
     Indication: PULMONARY HYPERTENSION
     Dosage: 10000 IU, Q1WEEK

REACTIONS (5)
  - Heart rate increased [Recovered/Resolved]
  - Abdominal symptom [Recovered/Resolved]
  - Dyspnoea [Recovered/Resolved]
  - Oxygen saturation decreased [Unknown]
  - Palpitations [Unknown]
